FAERS Safety Report 5341246-8 (Version None)
Quarter: 2007Q2

REPORT INFORMATION
  Report Type: 
  Country: None (occurrence: None)
  Receive Date: 20070404
  Receipt Date: 20061214
  Transmission Date: 20071010
  Serious: Yes (Other)
  Sender: FDA-Public Use
  Company Number: 2006153957

PATIENT
  Age: 15 Year
  Sex: Female

DRUGS (1)
  1. GEODON [Suspect]

REACTIONS (2)
  - PARAESTHESIA [None]
  - TRISMUS [None]
